FAERS Safety Report 7775573-1 (Version None)
Quarter: 2011Q3

REPORT INFORMATION
  Report Type: 
  Country: None (occurrence: None)
  Receive Date: 20110923
  Receipt Date: 20100129
  Transmission Date: 20111222
  Serious: Yes (Hospitalization)
  Sender: FDA-Public Use
  Company Number: CO-ROCHE-682452

PATIENT
  Sex: Male

DRUGS (2)
  1. INTERFERON [Concomitant]
  2. AVASTIN [Suspect]
     Route: 042
     Dates: start: 20090901, end: 20100101

REACTIONS (1)
  - CONVULSION [None]
